FAERS Safety Report 8681113 (Version 2)
Quarter: 2013Q4

REPORT INFORMATION
  Report Type: Spontaneous
  Country: US (occurrence: US)
  Receive Date: 20120724
  Receipt Date: 20131101
  Transmission Date: 20140711
  Serious: No
  Sender: FDA-Public Use
  Company Number: US-009507513-1207USA005425

PATIENT
  Sex: Female
  Weight: 63.49 kg

DRUGS (2)
  1. COZAAR [Suspect]
     Indication: HYPERTENSION
  2. METAMUCIL [Concomitant]
     Indication: CONSTIPATION

REACTIONS (1)
  - Migraine [Unknown]
